FAERS Safety Report 7399430-8 (Version None)
Quarter: 2011Q2

REPORT INFORMATION
  Report Type: 
  Country: None (occurrence: None)
  Receive Date: 20110407
  Receipt Date: 20110325
  Transmission Date: 20111010
  Serious: Yes (Other)
  Sender: FDA-Public Use
  Company Number: PHFR2011IE02234

PATIENT
  Sex: Female
  Weight: 45 kg

DRUGS (1)
  1. CLOZARIL [Suspect]
     Dosage: UNK DF, UNK

REACTIONS (2)
  - CACHEXIA [None]
  - WEIGHT DECREASED [None]
